FAERS Safety Report 4558240-7 (Version None)
Quarter: 2005Q1

REPORT INFORMATION
  Report Type: 
  Country: None (occurrence: None)
  Receive Date: 20050103
  Receipt Date: 20041102
  Transmission Date: 20050727
  Serious: Yes (Other)
  Sender: FDA-Public Use
  Company Number: 2004UW21569

PATIENT
  Age: 33 Year
  Sex: Female
  Weight: 102.5129 kg

DRUGS (4)
  1. CRESTOR [Suspect]
     Dosage: 10 MG DAILY PO
     Route: 048
     Dates: start: 20041015
  2. PHENTERMINE [Concomitant]
  3. SYNTHROID [Concomitant]
  4. ORTHO TRI-CYCLEN [Concomitant]

REACTIONS (3)
  - DISORIENTATION [None]
  - NAUSEA [None]
  - SENSATION OF HEAVINESS [None]
